FAERS Safety Report 11805361 (Version 1)
Quarter: 2015Q4

REPORT INFORMATION
  Report Type: Report from Study
  Country: US (occurrence: US)
  Receive Date: 20151207
  Receipt Date: 20151207
  Transmission Date: 20160305
  Serious: No
  Sender: FDA-Public Use
  Company Number: US-AMGEN-USASL2015128772

PATIENT
  Age: 74 Year
  Sex: Female

DRUGS (1)
  1. ENBREL [Suspect]
     Active Substance: ETANERCEPT
     Indication: PSORIASIS
     Dosage: UNK UNK, EVERY 14 DAYS
     Route: 065
     Dates: start: 2013, end: 20151029

REACTIONS (4)
  - Inappropriate schedule of drug administration [Unknown]
  - Condition aggravated [Unknown]
  - Incorrect product storage [Unknown]
  - Acne [Unknown]
